FAERS Safety Report 6343689-2 (Version None)
Quarter: 2009Q3

REPORT INFORMATION
  Report Type: 
  Country: None (occurrence: None)
  Receive Date: 20090908
  Receipt Date: 20090831
  Transmission Date: 20100115
  Serious: Yes (Congenital Anomaly)
  Sender: FDA-Public Use
  Company Number: A0679448A

PATIENT
  Sex: Female

DRUGS (7)
  1. PAXIL [Suspect]
     Indication: DRUG USE FOR UNKNOWN INDICATION
  2. DILANTIN [Concomitant]
     Dates: start: 19950801
  3. DEPAKOTE [Concomitant]
     Dates: start: 19960101
  4. KEFLEX [Concomitant]
     Dates: start: 19960110
  5. VITAMIN TAB [Concomitant]
  6. FOLIC ACID [Concomitant]
     Dates: start: 19970801
  7. MARIJUANA [Concomitant]

REACTIONS (4)
  - CARDIAC DISORDER [None]
  - CARDIAC SEPTAL DEFECT [None]
  - CONGENITAL ANOMALY [None]
  - DRUG EXPOSURE DURING PREGNANCY [None]
